FAERS Safety Report 5397519-6 (Version None)
Quarter: 2007Q3

REPORT INFORMATION
  Report Type: 
  Country: None (occurrence: None)
  Receive Date: 20070726
  Receipt Date: 20070717
  Transmission Date: 20080115
  Serious: Yes (Hospitalization)
  Sender: FDA-Public Use
  Company Number: JP-JNJFOC-20040204711

PATIENT
  Sex: Female
  Weight: 50 kg

DRUGS (6)
  1. REMICADE [Suspect]
     Route: 041
     Dates: start: 20030918
  2. REMICADE [Suspect]
     Route: 041
     Dates: start: 20030918
  3. REMICADE [Suspect]
     Route: 041
     Dates: start: 20030918
  4. REMICADE [Suspect]
     Indication: RHEUMATOID ARTHRITIS
     Route: 041
     Dates: start: 20030918
  5. RHEUMATREX [Concomitant]
     Route: 065
     Dates: start: 20030618
  6. NORGESTREL AND ETHINYL ESTRADIOL [Concomitant]
     Route: 048

REACTIONS (1)
  - TENDON RUPTURE [None]
